FAERS Safety Report 9894191 (Version 2)
Quarter: 2014Q1

REPORT INFORMATION
  Report Type: Spontaneous
  Country: CA (occurrence: CA)
  Receive Date: 20140213
  Receipt Date: 20140213
  Transmission Date: 20141002
  Serious: Yes (Hospitalization, Other)
  Sender: FDA-Public Use
  Company Number: CA-BRISTOL-MYERS SQUIBB COMPANY-19145721

PATIENT
  Age: 31 Year
  Sex: Female
  Weight: 86.17 kg

DRUGS (4)
  1. ABILIFY TABS 5 MG [Suspect]
     Indication: DEPRESSION
     Dosage: 1DF:2+5 MG TABS/D:12MG 2YRS AGO:7MG 3.5 WK AGO:5MG,6MG,7MG
  2. ABILIFY TABS 5 MG [Suspect]
     Indication: PSYCHOTIC DISORDER
     Dosage: 1DF:2+5 MG TABS/D:12MG 2YRS AGO:7MG 3.5 WK AGO:5MG,6MG,7MG
  3. ASPIRIN [Concomitant]
     Indication: CORONARY ARTERY OCCLUSION
  4. LORAZEPAM [Concomitant]

REACTIONS (19)
  - Agitation [Unknown]
  - Paraesthesia [Unknown]
  - Blood magnesium decreased [Unknown]
  - Suicidal ideation [Unknown]
  - Affect lability [Unknown]
  - Anger [Unknown]
  - Micturition urgency [Recovered/Resolved]
  - Nocturia [Unknown]
  - Increased tendency to bruise [Unknown]
  - Anxiety [Unknown]
  - Breast pain [Unknown]
  - Fall [Unknown]
  - Constipation [Unknown]
  - Abdominal pain upper [Unknown]
  - Decreased activity [Unknown]
  - Gastrointestinal disorder [Unknown]
  - Liver disorder [Unknown]
  - Tremor [Unknown]
  - Blood copper increased [Unknown]
